FAERS Safety Report 4504805-8 (Version None)
Quarter: 2004Q4

REPORT INFORMATION
  Report Type: 
  Country: None (occurrence: None)
  Receive Date: 20041118
  Receipt Date: 20041110
  Transmission Date: 20050328
  Serious: Yes (Hospitalization)
  Sender: FDA-Public Use
  Company Number: SE-MERCK-0411SWE00020

PATIENT
  Age: 67 Year
  Sex: Male

DRUGS (6)
  1. VIOXX [Suspect]
     Indication: ANKYLOSING SPONDYLITIS
     Route: 048
     Dates: start: 20030505, end: 20030901
  2. WARFARIN SODIUM [Concomitant]
     Route: 065
  3. DIGOXIN [Concomitant]
     Route: 065
  4. LOSARTAN POTASSIUM [Concomitant]
     Route: 065
  5. METOPROLOL TARTRATE [Concomitant]
     Route: 065
  6. BENDROFLUMETHIAZIDE AND POTASSIUM CHLORIDE [Concomitant]
     Route: 065

REACTIONS (8)
  - AMNESIA [None]
  - APATHY [None]
  - CEREBRAL INFARCTION [None]
  - DISTURBANCE IN ATTENTION [None]
  - FATIGUE [None]
  - GAIT DISTURBANCE [None]
  - PERSONALITY CHANGE [None]
  - SLEEP DISORDER [None]
